FAERS Safety Report 10046597 (Version 1)
Quarter: 2014Q1

REPORT INFORMATION
  Report Type: Spontaneous
  Country: US (occurrence: US)
  Receive Date: 20140331
  Receipt Date: 20140331
  Transmission Date: 20141002
  Serious: No
  Sender: FDA-Public Use
  Company Number: US-BIOGENIDEC-2014BI028658

PATIENT
  Age: 70 Year
  Sex: Female

DRUGS (7)
  1. TECFIDERA [Suspect]
     Indication: MULTIPLE SCLEROSIS
     Route: 048
     Dates: start: 20140316
  2. CYMBALTA [Concomitant]
  3. FOLIC ACID [Concomitant]
  4. BACLOFEN [Concomitant]
  5. CALCIUM [Concomitant]
  6. MVI [Concomitant]
  7. EDARBI [Concomitant]

REACTIONS (5)
  - Muscular weakness [Not Recovered/Not Resolved]
  - Asthenia [Not Recovered/Not Resolved]
  - Feeling abnormal [Not Recovered/Not Resolved]
  - Flushing [Recovered/Resolved]
  - Abdominal discomfort [Not Recovered/Not Resolved]
